FAERS Safety Report 10653858 (Version 1)
Quarter: 2014Q4

REPORT INFORMATION
  Report Type: Spontaneous
  Country: US (occurrence: None)
  Receive Date: 20141212
  Receipt Date: 20141212
  Transmission Date: 20150529
  Serious: Yes (Hospitalization, Disabling, Other)
  Sender: FDA-Public Use
  Company Number: DEP_02389_2014

PATIENT
  Age: 36 Year
  Sex: Female
  Weight: 54.43 kg

DRUGS (5)
  1. GRALISE [Suspect]
     Active Substance: GABAPENTIN
     Indication: COMPLEX REGIONAL PAIN SYNDROME
     Dosage: AT NIGHT WITH FOOD
     Route: 048
     Dates: start: 20130710, end: 20130719
  2. GRALISE [Suspect]
     Active Substance: GABAPENTIN
     Indication: OFF LABEL USE
     Dosage: AT NIGHT WITH FOOD
     Route: 048
     Dates: start: 20130710, end: 20130719
  3. XANAX [Concomitant]
     Active Substance: ALPRAZOLAM
  4. NATURAL VITAMIN D [Concomitant]
  5. VITAMIN E [Concomitant]
     Active Substance: .ALPHA.-TOCOPHEROL

REACTIONS (26)
  - Judgement impaired [None]
  - Decreased appetite [None]
  - Gallbladder disorder [None]
  - Haematemesis [None]
  - Vomiting [None]
  - Sphincter of Oddi dysfunction [None]
  - Hepatic steatosis [None]
  - Impaired work ability [None]
  - Withdrawal syndrome [None]
  - Memory impairment [None]
  - Pancreatitis [None]
  - Biliary dilatation [None]
  - Overdose [None]
  - Fatigue [None]
  - Panic attack [None]
  - Blood pressure increased [None]
  - Blindness [None]
  - Pain [None]
  - Sepsis [None]
  - Nausea [None]
  - Fluid retention [None]
  - Asthenia [None]
  - Weight decreased [None]
  - Hepatic enzyme abnormal [None]
  - Dyspepsia [None]
  - Insomnia [None]

NARRATIVE: CASE EVENT DATE: 20130711
